FAERS Safety Report 5244009-7 (Version None)
Quarter: 2007Q1

REPORT INFORMATION
  Report Type: 
  Country: None (occurrence: None)
  Receive Date: 20070222
  Receipt Date: 20070220
  Transmission Date: 20070707
  Serious: Yes (Death)
  Sender: FDA-Public Use
  Company Number: CA-JNJFOC-20070105507

PATIENT
  Sex: Female
  Weight: 108.86 kg

DRUGS (5)
  1. DURAGESIC-100 [Suspect]
     Indication: IDIOPATHIC THROMBOCYTOPENIC PURPURA
     Route: 062
  2. DURAGESIC-100 [Suspect]
     Indication: PAIN
     Route: 062
  3. TYLENOL [Concomitant]
     Indication: DRUG USE FOR UNKNOWN INDICATION
     Dosage: 1-2 TABLETS UP TO 3 TIMES A DAY
  4. WELLBUTRIN [Concomitant]
     Indication: MENTAL DISORDER
     Route: 048
  5. TRAZODONE HCL [Concomitant]
     Indication: MENTAL DISORDER
     Route: 048

REACTIONS (4)
  - DEVICE LEAKAGE [None]
  - DRUG ABUSER [None]
  - OVERDOSE [None]
  - ROAD TRAFFIC ACCIDENT [None]
